FAERS Safety Report 6310899-X (Version None)
Quarter: 2009Q3

REPORT INFORMATION
  Report Type: 
  Country: None (occurrence: None)
  Receive Date: 20090812
  Receipt Date: 20090730
  Transmission Date: 20100115
  Serious: Yes (Other)
  Sender: FDA-Public Use
  Company Number: MPS1-1000251

PATIENT
  Age: 7 Year
  Sex: Male
  Weight: 19 kg

DRUGS (4)
  1. ALDURAZYME [Suspect]
     Indication: MUCOPOLYSACCHARIDOSIS I
     Dosage: 20 MG
     Dates: start: 20090701
  2. AUGMENTIN '125' [Concomitant]
  3. CELESTONE (BETAMETHASONE) [Concomitant]
  4. BUDESONIDE [Concomitant]

REACTIONS (2)
  - CYANOSIS [None]
  - DYSPNOEA [None]
